FAERS Safety Report 18702078 (Version 3)
Quarter: 2024Q2

REPORT INFORMATION
  Report Type: Spontaneous
  Country: US (occurrence: US)
  Receive Date: 20210105
  Receipt Date: 20240507
  Transmission Date: 20240715
  Serious: Yes (Other)
  Sender: FDA-Public Use
  Company Number: US-PFIZER INC-2020520843

PATIENT
  Age: 67 Year
  Sex: Female
  Weight: 99.79 kg

DRUGS (1)
  1. XELJANZ XR [Suspect]
     Active Substance: TOFACITINIB CITRATE
     Indication: Rheumatoid arthritis
     Dosage: 11 MG, 1X/DAY (11MG TABLET BY MOUTH ONCE IN THE MORNING)
     Route: 048
     Dates: start: 20201224

REACTIONS (1)
  - Atrial fibrillation [Unknown]
